FAERS Safety Report 7895299-3 (Version None)
Quarter: 2011Q4

REPORT INFORMATION
  Report Type: 
  Country: None (occurrence: None)
  Receive Date: 20111106
  Receipt Date: 20110825
  Transmission Date: 20120403
  Serious: No
  Sender: FDA-Public Use
  Company Number: US-AMGEN-USASP2011043552

PATIENT
  Age: 76 Year
  Sex: Female

DRUGS (1)
  1. ENBREL [Suspect]
     Indication: PSORIATIC ARTHROPATHY
     Dosage: 50 MG, QWK
     Dates: start: 20110703

REACTIONS (5)
  - ALLERGIC COUGH [None]
  - HEADACHE [None]
  - INJECTION SITE PAIN [None]
  - VISUAL IMPAIRMENT [None]
  - UPPER-AIRWAY COUGH SYNDROME [None]
